FAERS Safety Report 13630107 (Version 4)
Quarter: 2018Q4

REPORT INFORMATION
  Report Type: Report from Study
  Country: FR (occurrence: FR)
  Receive Date: 20170608
  Receipt Date: 20181005
  Transmission Date: 20190204
  Serious: Yes (Other)
  Sender: FDA-Public Use
  Company Number: FR-PFIZER INC-2016272154

PATIENT
  Age: 74 Year
  Sex: Male
  Weight: 77 kg

DRUGS (11)
  1. SUNITINIB MALATE. [Suspect]
     Active Substance: SUNITINIB MALATE
     Dosage: 50 MG, CYCLIC (3/2)
     Dates: start: 20150202, end: 20150513
  2. SUNITINIB MALATE. [Suspect]
     Active Substance: SUNITINIB MALATE
     Dosage: UNK
  3. SUNITINIB MALATE. [Suspect]
     Active Substance: SUNITINIB MALATE
     Dosage: UNK
  4. OMEPRAZOLE. [Concomitant]
     Active Substance: OMEPRAZOLE
     Indication: PROPHYLAXIS
     Dosage: UNK
     Dates: start: 201306
  5. LOXEN /00639802/ [Concomitant]
     Active Substance: NICARDIPINE HYDROCHLORIDE
     Indication: HYPERTENSION
     Dosage: UNK
  6. PREVISCAN /00789001/ [Concomitant]
     Active Substance: FLUINDIONE
     Indication: PHLEBITIS
     Dosage: UNK
     Dates: start: 1995
  7. SUNITINIB MALATE. [Suspect]
     Active Substance: SUNITINIB MALATE
     Indication: METASTATIC RENAL CELL CARCINOMA
     Dosage: 50 MG, CYCLIC (ONCE DAILY SCHEME 4/2)
     Dates: start: 20130326, end: 201405
  8. SUNITINIB MALATE. [Suspect]
     Active Substance: SUNITINIB MALATE
     Dosage: 37.5 MG, CYCLIC (2/1)
     Dates: start: 20140519, end: 201502
  9. EUPRESSYL /00631801/ [Concomitant]
     Active Substance: URAPIDIL
     Indication: HYPERTENSION
     Dosage: UNK
  10. SUNITINIB MALATE. [Suspect]
     Active Substance: SUNITINIB MALATE
     Dosage: UNK
  11. ALLOPURINOL. [Concomitant]
     Active Substance: ALLOPURINOL
     Indication: HYPERURICAEMIA
     Dosage: UNK

REACTIONS (11)
  - Nausea [Recovered/Resolved]
  - Anaemia [Not Recovered/Not Resolved]
  - Palmar-plantar erythrodysaesthesia syndrome [Recovered/Resolved]
  - Blood creatinine increased [Recovered/Resolved]
  - Palmar-plantar erythrodysaesthesia syndrome [Recovered/Resolved]
  - Hypothyroidism [Recovered/Resolved]
  - Diarrhoea [Recovered/Resolved]
  - Hyperchlorhydria [Recovered/Resolved]
  - Presyncope [Recovered/Resolved]
  - Hyperchlorhydria [Recovered/Resolved]
  - Asthenia [Recovered/Resolved]

NARRATIVE: CASE EVENT DATE: 201304
